FAERS Safety Report 6530668-5 (Version None)
Quarter: 2010Q1

REPORT INFORMATION
  Report Type: 
  Country: None (occurrence: None)
  Receive Date: 20100108
  Receipt Date: 20090220
  Transmission Date: 20100710
  Serious: No
  Sender: FDA-Public Use
  Company Number: A0751354A

PATIENT
  Age: 53 Year
  Sex: Female

DRUGS (5)
  1. LOVAZA [Suspect]
     Dosage: 4G PER DAY
     Route: 048
     Dates: start: 20080801, end: 20081002
  2. LIPITOR [Concomitant]
  3. TRICOR [Concomitant]
  4. ACCUPRIL [Concomitant]
  5. QUINAPRIL [Concomitant]

REACTIONS (4)
  - ABDOMINAL PAIN UPPER [None]
  - BLOOD CHOLESTEROL INCREASED [None]
  - BLOOD GLUCOSE INCREASED [None]
  - DIARRHOEA [None]
